FAERS Safety Report 13563927 (Version 5)
Quarter: 2017Q3

REPORT INFORMATION
  Report Type: Report from Study
  Country: GB (occurrence: GB)
  Receive Date: 20170519
  Receipt Date: 20170822
  Transmission Date: 20171127
  Serious: Yes (Other)
  Sender: FDA-Public Use
  Company Number: GB-UCBSA-2017019361

PATIENT
  Age: 22 Year
  Sex: Female

DRUGS (2)
  1. CERTOLIZUMAB PEGOL JIA AUTOCLICKS [Suspect]
     Active Substance: CERTOLIZUMAB PEGOL
     Indication: JUVENILE IDIOPATHIC ARTHRITIS
     Dosage: 400 MG, EV 2 WEEKS(QOW)
     Route: 058
     Dates: start: 20170510, end: 20170510
  2. GOLIMUMAB [Concomitant]
     Active Substance: GOLIMUMAB
     Indication: PRODUCT USED FOR UNKNOWN INDICATION
     Dosage: UNK

REACTIONS (9)
  - Epistaxis [Recovered/Resolved]
  - Off label use [Unknown]
  - Nasopharyngitis [Not Recovered/Not Resolved]
  - Paraesthesia [Recovered/Resolved]
  - Paraesthesia oral [Unknown]
  - Ill-defined disorder [Unknown]
  - Rash generalised [Unknown]
  - Exposure during pregnancy [Unknown]
  - Pruritus generalised [Recovered/Resolved]

NARRATIVE: CASE EVENT DATE: 2017
